FAERS Safety Report 23156818 (Version 1)
Quarter: 2023Q4

REPORT INFORMATION
  Report Type: Spontaneous
  Country: JP (occurrence: JP)
  Receive Date: 20231108
  Receipt Date: 20231108
  Transmission Date: 20240109
  Serious: Yes (Hospitalization, Other)
  Sender: FDA-Public Use
  Company Number: JP-ONO-2023JP026936

PATIENT
  Age: 82 Year
  Sex: Female

DRUGS (2)
  1. RIVASTIGMINE [Suspect]
     Active Substance: RIVASTIGMINE
     Dosage: 99 MG, 11 PATCHES
     Route: 062
  2. RIVASTIGMINE [Suspect]
     Active Substance: RIVASTIGMINE
     Indication: Dementia Alzheimer^s type
     Dosage: UNK
     Route: 062

REACTIONS (7)
  - Parkinsonism [Recovering/Resolving]
  - Aspiration [Unknown]
  - Pyrexia [Recovering/Resolving]
  - Sputum increased [Unknown]
  - Rhinorrhoea [Unknown]
  - Wrong technique in product usage process [Unknown]
  - Overdose [Unknown]
